FAERS Safety Report 15439908 (Version 1)
Quarter: 2018Q3

REPORT INFORMATION
  Report Type: Spontaneous
  Country: US (occurrence: US)
  Receive Date: 20180928
  Receipt Date: 20180928
  Transmission Date: 20181010
  Serious: Yes (Disabling, Other)
  Sender: FDA-Public Use
  Company Number: US-REGENERON PHARMACEUTICALS, INC.-2018-38477

PATIENT

DRUGS (2)
  1. EYLEA [Suspect]
     Active Substance: AFLIBERCEPT
     Indication: NEOVASCULAR AGE-RELATED MACULAR DEGENERATION
     Dosage: 2 MG, MONTHLY ? RIGHT EYE
     Route: 031
     Dates: start: 20111222
  2. EYLEA [Suspect]
     Active Substance: AFLIBERCEPT
     Dosage: 2 MG, MONTHLY LEFT EYE
     Route: 031
     Dates: start: 20160303, end: 20180911

REACTIONS (2)
  - Endophthalmitis [Recovering/Resolving]
  - Blindness unilateral [Unknown]

NARRATIVE: CASE EVENT DATE: 20180914
